FAERS Safety Report 14930909 (Version 1)
Quarter: 2018Q2

REPORT INFORMATION
  Report Type: Spontaneous
  Country: LK (occurrence: LK)
  Receive Date: 20180524
  Receipt Date: 20180524
  Transmission Date: 20180711
  Serious: No
  Sender: FDA-Public Use
  Company Number: LK-LUPIN PHARMACEUTICALS INC.-2018-02313

PATIENT
  Age: 44 Year
  Sex: Male

DRUGS (2)
  1. VANCOMYCIN [Suspect]
     Active Substance: VANCOMYCIN
     Indication: DENGUE HAEMORRHAGIC FEVER
     Dosage: UNK
     Route: 042
  2. CIPROFLOXACIN. [Suspect]
     Active Substance: CIPROFLOXACIN
     Indication: DENGUE HAEMORRHAGIC FEVER
     Dosage: UNK
     Route: 042

REACTIONS (1)
  - Injection site abscess [Recovered/Resolved]
